FAERS Safety Report 16133535 (Version 2)
Quarter: 2019Q2

REPORT INFORMATION
  Report Type: Spontaneous
  Country: CA (occurrence: CA)
  Receive Date: 20190329
  Receipt Date: 20190408
  Transmission Date: 20190711
  Serious: Yes (Life-Threatening)
  Sender: FDA-Public Use
  Company Number: CA-TEVA-2019-CA-1029320

PATIENT
  Age: 15 Year
  Sex: Female

DRUGS (2)
  1. MANTRA-FERROUS SULFATE [Suspect]
     Active Substance: FERROUS SULFATE
     Indication: COLITIS ULCERATIVE
     Route: 065
  2. TEVA PREDNISONE [Concomitant]
     Dosage: 50 MILLIGRAM DAILY;
     Route: 065
     Dates: start: 20190318

REACTIONS (1)
  - Anaphylactic shock [Not Recovered/Not Resolved]

NARRATIVE: CASE EVENT DATE: 20190319
